FAERS Safety Report 4850447-4 (Version None)
Quarter: 2005Q4

REPORT INFORMATION
  Report Type: 
  Country: None (occurrence: None)
  Receive Date: 20051123
  Receipt Date: 20050909
  Transmission Date: 20060501
  Serious: No
  Sender: FDA-Public Use
  Company Number: TPA2005A01033

PATIENT
  Age: 78 Year
  Sex: Female
  Weight: 54.4316 kg

DRUGS (7)
  1. ROZEREM [Suspect]
     Indication: INSOMNIA
     Dosage: 8 MG, QHS, PER ORAL
     Route: 048
     Dates: start: 20050909
  2. TEMAZEPAM [Suspect]
     Indication: SLEEP DISORDER
     Dosage: 15 MG, AS REQUIRED, PER ORAL
     Route: 048
  3. LUNESTA [Suspect]
     Indication: SLEEP DISORDER
     Dosage: 3 MG, PER ORAL
     Route: 048
  4. PAXIL CR (PAROXETINE HYDROCHLORIDE) (37.5 MILLIGRAM) [Concomitant]
  5. FOSAMAX (ALENDRONATE SODIUM) (70 MILLIGRAM) [Concomitant]
  6. QUININE (QUININE) (260 MILLIGRAM) [Concomitant]
  7. NORVASC (AMLODIPINE BESILATE) (5 MILLIGRAM) [Concomitant]

REACTIONS (4)
  - DRUG INEFFECTIVE [None]
  - HYPERHIDROSIS [None]
  - PARAESTHESIA [None]
  - TENDERNESS [None]
